FAERS Safety Report 12651785 (Version 1)
Quarter: 2016Q3

REPORT INFORMATION
  Report Type: Spontaneous
  Country: FR (occurrence: FR)
  Receive Date: 20160815
  Receipt Date: 20160815
  Transmission Date: 20161109
  Serious: Yes (Hospitalization)
  Sender: FDA-Public Use
  Company Number: FR-BAYER-2016-100545

PATIENT
  Age: 37 Year
  Sex: Female

DRUGS (1)
  1. JAYDESS [Suspect]
     Active Substance: LEVONORGESTREL
     Dosage: 14 MCG/24HR, CONT
     Route: 015
     Dates: start: 20140916, end: 20140923

REACTIONS (2)
  - Pelvic pain [Recovering/Resolving]
  - Uterine mass [None]

NARRATIVE: CASE EVENT DATE: 20140926
